FAERS Safety Report 6327748-6 (Version None)
Quarter: 2009Q3

REPORT INFORMATION
  Report Type: 
  Country: None (occurrence: None)
  Receive Date: 20090824
  Receipt Date: 20080507
  Transmission Date: 20100115
  Serious: No
  Sender: FDA-Public Use
  Company Number: 2009S1008262

PATIENT
  Sex: Female

DRUGS (1)
  1. ZOLPIDEM [Suspect]
     Indication: SOMNOLENCE

REACTIONS (3)
  - DRY MOUTH [None]
  - HOT FLUSH [None]
  - IRRITABILITY [None]
